FAERS Safety Report 19881627 (Version 3)
Quarter: 2021Q4

REPORT INFORMATION
  Report Type: Spontaneous
  Country: GR (occurrence: GR)
  Receive Date: 20210925
  Receipt Date: 20211125
  Transmission Date: 20220304
  Serious: Yes (Other)
  Sender: FDA-Public Use
  Company Number: NVSC2021GR213976

PATIENT
  Age: 19 Year
  Sex: Female

DRUGS (1)
  1. OMNITROPE [Suspect]
     Active Substance: SOMATROPIN
     Indication: Growth hormone deficiency
     Dosage: 0.3 MG, QD
     Route: 058
     Dates: start: 20210526, end: 202107

REACTIONS (2)
  - Epilepsy [Recovering/Resolving]
  - Nervous system disorder [Unknown]
